FAERS Safety Report 9221993 (Version 3)
Quarter: 2013Q2

REPORT INFORMATION
  Report Type: Spontaneous
  Country: US (occurrence: US)
  Receive Date: 20130410
  Receipt Date: 20130515
  Transmission Date: 20140414
  Serious: No
  Sender: FDA-Public Use
  Company Number: US-PFIZER INC-2013112385

PATIENT
  Age: 46 Year
  Sex: Female
  Weight: 90.7 kg

DRUGS (2)
  1. CHANTIX [Suspect]
     Indication: SMOKING CESSATION THERAPY
     Dosage: 1 MG, 2X/DAY
     Route: 048
     Dates: start: 20130323, end: 20130330
  2. MS-CONTIN [Concomitant]
     Indication: MUSCULOSKELETAL DISCOMFORT
     Dosage: UNK

REACTIONS (1)
  - Agitation [Unknown]
